FAERS Safety Report 17725444 (Version 1)
Quarter: 2020Q2

REPORT INFORMATION
  Report Type: Spontaneous
  Country: US (occurrence: US)
  Receive Date: 20200429
  Receipt Date: 20200429
  Transmission Date: 20200714
  Serious: Yes (Hospitalization)
  Sender: FDA-Public Use
  Company Number: US-ANIPHARMA-2020-US-008035

PATIENT
  Age: 62 Year
  Sex: Female

DRUGS (2)
  1. FLECAINIDE ACETATE (NON-SPECIFIC) [Suspect]
     Active Substance: FLECAINIDE ACETATE
     Indication: ATRIAL FIBRILLATION
     Dosage: 200 MG DAILY
  2. GARENOXACIN [Suspect]
     Active Substance: GARENOXACIN
     Indication: ENTERITIS INFECTIOUS
     Dosage: 400 MG DAILY

REACTIONS (3)
  - Cardio-respiratory arrest [Recovered/Resolved]
  - Phospholipidosis [Recovered/Resolved]
  - Drug interaction [Recovered/Resolved]
